FAERS Safety Report 10525163 (Version 1)
Quarter: 2014Q4

REPORT INFORMATION
  Report Type: Spontaneous
  Country: CO (occurrence: None)
  Receive Date: 20141015
  Receipt Date: 20141015
  Transmission Date: 20150528
  Serious: Yes (Death, Hospitalization, Other)
  Sender: FDA-Public Use
  Company Number: 2014-20492

PATIENT
  Age: 81 Year
  Sex: Male

DRUGS (2)
  1. EYLEA [Suspect]
     Active Substance: AFLIBERCEPT
     Indication: AGE-RELATED MACULAR DEGENERATION
     Dates: start: 20140506, end: 20140506
  2. LOSARTAN (LOSARTAN) [Concomitant]
     Active Substance: LOSARTAN

REACTIONS (1)
  - Pneumonia [None]

NARRATIVE: CASE EVENT DATE: 2014
